FAERS Safety Report 4540594-9 (Version None)
Quarter: 2004Q4

REPORT INFORMATION
  Report Type: 
  Country: None (occurrence: None)
  Receive Date: 20041229
  Receipt Date: 20041130
  Transmission Date: 20050328
  Serious: Yes (Death, Hospitalization, Other)
  Sender: FDA-Public Use
  Company Number: 200419189US

PATIENT
  Sex: Female
  Weight: 59 kg

DRUGS (12)
  1. TAXOTERE [Suspect]
     Indication: BREAST CANCER
     Dosage: DOSE: 1 CYCLE
     Dates: start: 20021210, end: 20021210
  2. TAMOXIFEN CITRATE [Concomitant]
  3. LIDOCAINE [Concomitant]
     Route: 048
  4. NYSTATIN [Concomitant]
     Dosage: DOSE: UNKNOWN
  5. BENADRYL /OLD FORM/ [Concomitant]
     Dosage: DOSE: UNKNOWN
  6. SOLU-MEDROL [Concomitant]
     Route: 042
  7. PROTONIX [Concomitant]
     Route: 042
  8. PRIMAXIN [Concomitant]
  9. CARAFATE [Concomitant]
  10. INSULIN [Concomitant]
     Dosage: DOSE: SLIDING SCALE
  11. XELODA [Concomitant]
     Dosage: DOSE: UNKNOWN
  12. SPIRONOLACTONE [Concomitant]
     Dosage: DOSE: UNKNOWN

REACTIONS (12)
  - ALANINE AMINOTRANSFERASE INCREASED [None]
  - ASCITES [None]
  - ASPARTATE AMINOTRANSFERASE INCREASED [None]
  - ASTHENIA [None]
  - BLOOD ALKALINE PHOSPHATASE INCREASED [None]
  - BURNING SENSATION [None]
  - ESCHERICHIA SEPSIS [None]
  - MUCOSAL INFLAMMATION [None]
  - RENAL FAILURE [None]
  - RESPIRATORY FAILURE [None]
  - STOMATITIS [None]
  - STREPTOCOCCAL SEPSIS [None]
